FAERS Safety Report 8021683-3 (Version None)
Quarter: 2012Q1

REPORT INFORMATION
  Report Type: 
  Country: None (occurrence: None)
  Receive Date: 20120104
  Receipt Date: 20111229
  Transmission Date: 20120608
  Serious: Yes (Other)
  Sender: FDA-Public Use
  Company Number: PHEH2011US012011

PATIENT
  Sex: Female

DRUGS (3)
  1. RECLAST [Suspect]
     Indication: OSTEOPOROSIS
     Dosage: UNK
     Route: 042
  2. CELEBREX [Concomitant]
  3. THYROID THERAPY [Concomitant]

REACTIONS (6)
  - TEMPERATURE INTOLERANCE [None]
  - CONSTIPATION [None]
  - GLAUCOMA [None]
  - OSTEOPENIA [None]
  - BLOOD GLUCOSE DECREASED [None]
  - FOOD INTOLERANCE [None]
